FAERS Safety Report 25322963 (Version 1)
Quarter: 2025Q2

REPORT INFORMATION
  Report Type: Spontaneous
  Country: ES (occurrence: ES)
  Receive Date: 20250516
  Receipt Date: 20250516
  Transmission Date: 20250716
  Serious: Yes (Hospitalization, Other)
  Sender: CHEPLAPHARM
  Company Number: None

PATIENT
  Age: 77 Year
  Sex: Female

DRUGS (12)
  1. CLONAZEPAM [Suspect]
     Active Substance: CLONAZEPAM
     Indication: Agitation
     Dosage: BID?DAILY DOSE: 1 MILLIGRAM
     Route: 042
     Dates: start: 20250106, end: 20250107
  2. PHENYTOIN SODIUM [Suspect]
     Active Substance: PHENYTOIN SODIUM
     Indication: Generalised tonic-clonic seizure
     Dosage: DAILY DOSE: 300 MILLIGRAM
     Route: 042
     Dates: start: 20241230, end: 20250102
  3. PHENYTOIN SODIUM [Suspect]
     Active Substance: PHENYTOIN SODIUM
     Indication: Generalised tonic-clonic seizure
     Dosage: DAILY DOSE: 450 MILLIGRAM
     Route: 042
     Dates: start: 20250103, end: 20250110
  4. HALOPERIDOL [Suspect]
     Active Substance: HALOPERIDOL
     Indication: Agitation
     Dosage: HALOPERIDOL 5 MG INJECTION 1 ML?DAILY DOSE: 2 MILLIGRAM
     Route: 030
     Dates: start: 20241229, end: 20250107
  5. ESOMEPRAZOLE [Suspect]
     Active Substance: ESOMEPRAZOLE
     Indication: Prophylaxis
     Dosage: ESOMEPRAZOLE 40 MG INJECTION?DAILY DOSE: 40 MILLIGRAM
     Route: 042
     Dates: start: 20241231, end: 20250107
  6. VALPROIC ACID [Suspect]
     Active Substance: VALPROIC ACID
     Indication: Craniocerebral injury
     Route: 042
     Dates: start: 20250103, end: 20250103
  7. RISPERIDONE [Suspect]
     Active Substance: RISPERIDONE
     Indication: Craniocerebral injury
     Dosage: ORAL SOLUTION 0.25 EVERY 12 HOURS ORAL?DAILY DOSE: 2 DOSAGE FORM
     Route: 048
     Dates: start: 20250105, end: 20250107
  8. LEVOFLOXACIN [Suspect]
     Active Substance: LEVOFLOXACIN
     Indication: Infection
     Dosage: DAILY DOSE: 500 MILLIGRAM
     Route: 048
     Dates: start: 20241215, end: 20241222
  9. BETAHISTINE [Suspect]
     Active Substance: BETAHISTINE
     Indication: Vertigo
     Dosage: DAILY DOSE: 8 MILLIGRAM
     Route: 048
     Dates: start: 20241218, end: 20241224
  10. LEVETIRACETAM [Concomitant]
     Active Substance: LEVETIRACETAM
     Indication: Craniocerebral injury
     Dosage: DAILY DOSE: 1000 MILLIGRAM
     Route: 042
     Dates: start: 20241229
  11. MIRTAZAPINE [Concomitant]
     Active Substance: MIRTAZAPINE
     Dates: start: 20250101
  12. QUETIAPINE [Concomitant]
     Active Substance: QUETIAPINE
     Indication: Agitation
     Dosage: DAILY DOSE: 25 MILLIGRAM
     Route: 048
     Dates: start: 20250101, end: 20250117

REACTIONS (2)
  - Toxic skin eruption [Recovered/Resolved]
  - Off label use [Recovered/Resolved]

NARRATIVE: CASE EVENT DATE: 20250106
